FAERS Safety Report 6811860-9 (Version None)
Quarter: 2010Q2

REPORT INFORMATION
  Report Type: 
  Country: None (occurrence: None)
  Receive Date: 20100628
  Receipt Date: 20100611
  Transmission Date: 20101027
  Serious: Yes (Hospitalization)
  Sender: FDA-Public Use
  Company Number: 2010RR-33810

PATIENT
  Age: 11 Year
  Sex: Female

DRUGS (1)
  1. AMOXICILLIN [Suspect]
     Indication: TONSILLITIS
     Dosage: 0.9 GRAM (S) DAILY

REACTIONS (1)
  - ENTEROCOLITIS HAEMORRHAGIC [None]
